FAERS Safety Report 7992500-2 (Version None)
Quarter: 2011Q4

REPORT INFORMATION
  Report Type: 
  Country: None (occurrence: None)
  Receive Date: 20111219
  Receipt Date: 20111214
  Transmission Date: 20120403
  Serious: Yes (Other)
  Sender: FDA-Public Use
  Company Number: DE-PFIZER INC-2011287573

PATIENT
  Age: 32 Year
  Sex: Male
  Weight: 95 kg

DRUGS (2)
  1. VENLAFAXINE HYDROCHLORIDE [Suspect]
     Indication: ANTIDEPRESSANT THERAPY
     Dosage: 75 MG, 2X/DAY
  2. VENLAFAXINE HYDROCHLORIDE [Suspect]
     Dosage: 75 MG MORNING, 37.5 MG AFTERNOON, 75 MG EVENING

REACTIONS (2)
  - MICTURITION DISORDER [None]
  - URINARY RETENTION [None]
